FAERS Safety Report 22664463 (Version 3)
Quarter: 2023Q4

REPORT INFORMATION
  Report Type: Other
  Country: PT (occurrence: PT)
  Receive Date: 20230703
  Receipt Date: 20231218
  Transmission Date: 20240110
  Serious: Yes (Life-Threatening, Hospitalization, Other)
  Sender: FDA-Public Use
  Company Number: PT-MACLEODS PHARMACEUTICALS US LTD-MAC2023042113

PATIENT

DRUGS (2)
  1. ESCITALOPRAM [Suspect]
     Active Substance: ESCITALOPRAM OXALATE
     Indication: Depression
     Dosage: 110 DOSAGE FORM, SINGLE  (110 TABLETS OF ESCITALOPRAM 10 MG)
     Route: 048
  2. VENLAFAXINE [Suspect]
     Active Substance: VENLAFAXINE HYDROCHLORIDE
     Indication: Depression
     Dosage: 30 DOSAGE FORM, SINGLE (30 TABLETS OF VENLAFAXINE 75 MG)
     Route: 048

REACTIONS (12)
  - Toxicity to various agents [Recovered/Resolved]
  - Hypophosphataemia [Recovered/Resolved]
  - Clonus [Recovered/Resolved]
  - Pyrexia [Recovered/Resolved]
  - Nystagmus [Recovered/Resolved]
  - Electrocardiogram QT prolonged [Recovered/Resolved]
  - Tremor [Recovered/Resolved]
  - Myoclonus [Recovered/Resolved]
  - Hyperhidrosis [Recovered/Resolved]
  - Vomiting [Recovered/Resolved]
  - Serotonin syndrome [Recovered/Resolved]
  - Intentional overdose [Unknown]
